FAERS Safety Report 4873359-9 (Version None)
Quarter: 2006Q1

REPORT INFORMATION
  Report Type: 
  Country: None (occurrence: None)
  Receive Date: 20060105
  Receipt Date: 20051223
  Transmission Date: 20060701
  Serious: Yes (Other)
  Sender: FDA-Public Use
  Company Number: DE-ROCHE-429867

PATIENT
  Sex: Male

DRUGS (1)
  1. LARIAM [Suspect]
     Indication: MALARIA PROPHYLAXIS
     Route: 048
     Dates: start: 20030615, end: 20030615

REACTIONS (5)
  - ARRHYTHMIA [None]
  - ASTHENIA [None]
  - HYPERSENSITIVITY [None]
  - MYOCARDITIS [None]
  - PERICARDIAL EFFUSION [None]
